FAERS Safety Report 6523515-9 (Version None)
Quarter: 2009Q4

REPORT INFORMATION
  Report Type: 
  Country: None (occurrence: None)
  Receive Date: 20091231
  Receipt Date: 20091219
  Transmission Date: 20100525
  Serious: Yes (Other)
  Sender: FDA-Public Use
  Company Number: PHHY2009MX57062

PATIENT
  Sex: Female

DRUGS (5)
  1. DIOVAN [Suspect]
     Indication: HYPERTENSION
     Dosage: 1 TABLET (160 MG) PER DAY
     Route: 048
     Dates: start: 20090930
  2. DIOVAN HCT [Suspect]
     Indication: HYPERTENSION
     Dosage: 1 TABLET PER DAY
     Route: 048
     Dates: start: 20090930
  3. JANUMET [Concomitant]
     Dosage: 1 TABLET PER DAY
     Dates: start: 20090930
  4. ASPIRIN [Concomitant]
     Dosage: 1 TABLET PER DAY
     Dates: start: 20090701
  5. GLIBENCLAMIDE [Concomitant]
     Indication: DIABETES MELLITUS
     Dosage: 1 TABLET PER DAY
     Dates: start: 20090901

REACTIONS (5)
  - EFFUSION [None]
  - EYE DISORDER [None]
  - EYE OPERATION [None]
  - HYPERGLYCAEMIA [None]
  - HYPERTENSION [None]
